FAERS Safety Report 9896898 (Version 2)
Quarter: 2014Q2

REPORT INFORMATION
  Report Type: Spontaneous
  Country: DE (occurrence: DE)
  Receive Date: 20140214
  Receipt Date: 20140402
  Transmission Date: 20141212
  Serious: Yes (Hospitalization)
  Sender: FDA-Public Use
  Company Number: DE-ROCHE-1347126

PATIENT
  Age: 71 Year
  Sex: Male
  Weight: 71 kg

DRUGS (7)
  1. AVASTIN [Suspect]
     Indication: COLORECTAL CANCER METASTATIC
     Route: 042
     Dates: start: 20130327
  2. 5-FU [Suspect]
     Indication: COLORECTAL CANCER METASTATIC
     Route: 065
  3. PANTOZOL (GERMANY) [Concomitant]
     Route: 065
  4. IRINOTECAN [Concomitant]
     Indication: COLORECTAL CANCER METASTATIC
     Route: 065
  5. FOLINIC ACID [Concomitant]
     Indication: COLORECTAL CANCER METASTATIC
     Route: 065
  6. CYMBALTA [Concomitant]
     Route: 065
  7. LOPERAMID [Concomitant]
     Route: 065

REACTIONS (2)
  - Encephalitis [Recovered/Resolved]
  - Epilepsy [Recovered/Resolved]
